FAERS Safety Report 6973269-7 (Version None)
Quarter: 2010Q3

REPORT INFORMATION
  Report Type: 
  Country: None (occurrence: None)
  Receive Date: 20100909
  Receipt Date: 20100825
  Transmission Date: 20110219
  Serious: Yes (Other)
  Sender: FDA-Public Use
  Company Number: PHHY2010US56746

PATIENT
  Sex: Female

DRUGS (1)
  1. CALCITONIN-SALMON [Suspect]
     Dosage: UNK
     Route: 045

REACTIONS (2)
  - BONE DENSITY INCREASED [None]
  - BONE DEVELOPMENT ABNORMAL [None]
